FAERS Safety Report 11920885 (Version 1)
Quarter: 2016Q1

REPORT INFORMATION
  Report Type: Spontaneous
  Country: IT (occurrence: IT)
  Receive Date: 20160115
  Receipt Date: 20160115
  Transmission Date: 20160526
  Serious: Yes (Hospitalization)
  Sender: FDA-Public Use
  Company Number: IT-NOVOPROD-476423

PATIENT
  Age: 76 Year
  Sex: Female

DRUGS (9)
  1. PRASTEROL [Concomitant]
  2. COMPETACT [Suspect]
     Active Substance: METFORMIN HYDROCHLORIDE\PIOGLITAZONE HYDROCHLORIDE
     Indication: TYPE 2 DIABETES MELLITUS
     Dosage: 2 TAB
     Route: 065
     Dates: start: 20140101
  3. ENAPREN [Concomitant]
     Active Substance: ENALAPRIL MALEATE
  4. EUTIROX [Concomitant]
     Active Substance: LEVOTHYROXINE SODIUM
  5. DIAMICRON [Suspect]
     Active Substance: GLICLAZIDE
     Indication: TYPE 2 DIABETES MELLITUS
     Dosage: 60 MG
     Route: 065
     Dates: start: 20140101
  6. LASIX [Concomitant]
     Active Substance: FUROSEMIDE
     Dosage: 1 TAB
  7. LEVEMIR [Suspect]
     Active Substance: INSULIN DETEMIR
     Indication: TYPE 2 DIABETES MELLITUS
     Dosage: 8 U, QD
     Route: 065
     Dates: start: 20140101, end: 20141216
  8. CARDURA [Concomitant]
     Active Substance: DOXAZOSIN MESYLATE
  9. MADOPAR [Concomitant]
     Active Substance: BENSERAZIDE HYDROCHLORIDE\LEVODOPA
     Dosage: 2 TAB

REACTIONS (2)
  - Hypoglycaemia [Recovered/Resolved]
  - Anaemia vitamin B12 deficiency [Recovered/Resolved]

NARRATIVE: CASE EVENT DATE: 20141216
